FAERS Safety Report 23816107 (Version 2)
Quarter: 2024Q2

REPORT INFORMATION
  Report Type: Spontaneous
  Country: GB (occurrence: GB)
  Receive Date: 20240503
  Receipt Date: 20240509
  Transmission Date: 20240716
  Serious: Yes (Death)
  Sender: FDA-Public Use
  Company Number: GB-JNJFOC-20240504354

PATIENT
  Age: 38 Day
  Sex: Male

DRUGS (1)
  1. ACETAMINOPHEN [Suspect]
     Active Substance: ACETAMINOPHEN
     Indication: Product used for unknown indication
     Dosage: 6 CRUSHED TABLETS HAD BEEN ADDED
     Route: 048

REACTIONS (4)
  - Poisoning deliberate [Fatal]
  - Intentional product misuse to child [Fatal]
  - Intentional overdose [Fatal]
  - Cardiac arrest [Fatal]

NARRATIVE: CASE EVENT DATE: 20200601
